FAERS Safety Report 9294883 (Version 1)
Quarter: 2013Q2

REPORT INFORMATION
  Report Type: Spontaneous
  Country: US (occurrence: None)
  Receive Date: 20130516
  Receipt Date: 20130516
  Transmission Date: 20140414
  Serious: Yes (Other)
  Sender: FDA-Public Use
  Company Number: None

PATIENT
  Age: 55 Year
  Sex: Female
  Weight: 52.16 kg

DRUGS (1)
  1. AZELASTINE [Suspect]
     Indication: RHINITIS
     Dosage: 1 SPRAY IN EACH NOSTRIL
     Route: 045
     Dates: start: 20130329, end: 20130506

REACTIONS (2)
  - Gait disturbance [None]
  - Arthritis [None]
